FAERS Safety Report 7772968-7 (Version None)
Quarter: 2011Q3

REPORT INFORMATION
  Report Type: 
  Country: None (occurrence: None)
  Receive Date: 20110922
  Receipt Date: 20100823
  Transmission Date: 20111222
  Serious: No
  Sender: FDA-Public Use
  Company Number: US-ASTRAZENECA-2010SE39488

PATIENT
  Age: 176 Month
  Sex: Male
  Weight: 74.4 kg

DRUGS (6)
  1. SEROQUEL [Suspect]
     Indication: INSOMNIA
     Route: 048
     Dates: start: 20100708
  2. DEPAKOTE [Suspect]
     Indication: CONVULSION
     Route: 065
     Dates: start: 20100713
  3. SEROQUEL [Suspect]
     Indication: MOOD SWINGS
     Route: 048
     Dates: start: 20100708
  4. SEROQUEL [Suspect]
     Route: 048
     Dates: start: 20100801
  5. SEROQUEL [Suspect]
     Route: 048
     Dates: start: 20100801
  6. DEPAKOTE [Suspect]
     Route: 065
     Dates: start: 20100801

REACTIONS (6)
  - DEPRESSION [None]
  - ANXIETY [None]
  - HALLUCINATION, VISUAL [None]
  - SELF-INJURIOUS IDEATION [None]
  - HALLUCINATION, AUDITORY [None]
  - WEIGHT INCREASED [None]
